FAERS Safety Report 10164735 (Version 1)
Quarter: 2014Q2

REPORT INFORMATION
  Report Type: Spontaneous
  Country: US (occurrence: US)
  Receive Date: 20140510
  Receipt Date: 20140510
  Transmission Date: 20141212
  Serious: No
  Sender: FDA-Public Use
  Company Number: US-BRISTOL-MYERS SQUIBB COMPANY-19519545

PATIENT
  Age: 56 Year
  Sex: Female
  Weight: 77.55 kg

DRUGS (12)
  1. BYETTA [Suspect]
     Indication: TYPE 2 DIABETES MELLITUS
  2. METFORMIN [Concomitant]
  3. PRAVASTATIN SODIUM [Concomitant]
  4. NEXIUM [Concomitant]
  5. WELCHOL [Concomitant]
  6. CLARINEX [Concomitant]
  7. FUROSEMIDE [Concomitant]
  8. LYRICA [Concomitant]
  9. NORVASC [Concomitant]
  10. CYMBALTA [Concomitant]
  11. PROCARDIA XL [Concomitant]
  12. TOPROL XL [Concomitant]

REACTIONS (2)
  - Diarrhoea [Unknown]
  - Decreased appetite [Unknown]
